FAERS Safety Report 9216175 (Version 1)
Quarter: 2013Q2

REPORT INFORMATION
  Report Type: Spontaneous
  Country: IN (occurrence: None)
  Receive Date: 20130403
  Receipt Date: 20130403
  Transmission Date: 20140414
  Serious: Yes (Other)
  Sender: FDA-Public Use
  Company Number: DAV-AE-MTX-13-24

PATIENT
  Age: 30 Year
  Sex: Male

DRUGS (2)
  1. METHOTREXATE [Suspect]
     Indication: RHEUMATOID ARTHRITIS
     Dosage: 7.5 MG QWK, SUBCUTANEOUS
     Route: 058
  2. FOLIC ACID SUPPLEMENT [Concomitant]

REACTIONS (2)
  - Benign intracranial hypertension [None]
  - Psychotic disorder [None]
